FAERS Safety Report 8709284 (Version 3)
Quarter: 2012Q4

REPORT INFORMATION
  Report Type: 
  Country: US (occurrence: US)
  Receive Date: 20120806
  Receipt Date: 20121024
  Transmission Date: 20130627
  Serious: Yes (Hospitalization)
  Sender: FDA-Public Use
  Company Number: US-BAYER-2012-076814

PATIENT
  Age: 40 Year
  Sex: Female
  Weight: 76.19 kg

DRUGS (16)
  1. YAZ [Suspect]
     Indication: CONTRACEPTION
     Dosage: UNK
     Dates: start: 200712, end: 20100802
  2. YAZ [Suspect]
     Indication: POLYCYSTIC OVARIAN SYNDROME
  3. MOBIC [Concomitant]
     Dosage: 15 mg, Daily
     Dates: start: 20100603
  4. FENOFIBRATE [Concomitant]
     Indication: HIGH CHOLESTEROL
     Dosage: 120 mg, Daily
     Route: 048
  5. METFORMIN HYDROCHLORIDE [Concomitant]
     Dosage: 500 mg, Daily
     Dates: start: 20100603
  6. OMEPRAZOL [Concomitant]
     Dosage: 20 mg, Daily
     Route: 048
     Dates: start: 20100603
  7. CLARITIN [Concomitant]
     Dosage: 100 mg, Daily
     Route: 048
  8. TRIAMCINOLONE ACETONIDE [Concomitant]
     Dosage: UNK UNK, BID
     Route: 048
     Dates: start: 20100621
  9. MOMETASONE FUROATE [Concomitant]
     Dosage: 50 ?g, Daily
     Route: 045
     Dates: start: 20100621
  10. NEURONTIN [Concomitant]
     Route: 048
  11. GLUCOSAMINE [Concomitant]
  12. FIORICET [Concomitant]
     Dosage: UNK
     Dates: start: 201006
  13. MOTRIN [Concomitant]
     Indication: HEADACHE
     Dosage: UNK
     Dates: start: 200812, end: 201007
  14. METFORMIN [Concomitant]
     Indication: POLYCYSTIC OVARIAN SYNDROME
     Dosage: 500 mg, QD
     Dates: start: 2009
  15. METFORMIN [Concomitant]
     Indication: PREDIABETES
  16. PRAVACHOL [Concomitant]
     Indication: CHOLESTEROL LEVELS RAISED
     Dosage: UNK
     Dates: start: 2008

REACTIONS (2)
  - Pulmonary embolism [None]
  - Dyspnoea [None]
